FAERS Safety Report 9290848 (Version 1)
Quarter: 2013Q2

REPORT INFORMATION
  Report Type: Spontaneous
  Country: US (occurrence: US)
  Receive Date: 20130515
  Receipt Date: 20130515
  Transmission Date: 20140414
  Serious: No
  Sender: FDA-Public Use
  Company Number: US-PFIZER INC-2013148578

PATIENT
  Sex: Male

DRUGS (5)
  1. NORVASC [Suspect]
     Dosage: UNK
     Route: 048
  2. HUMALIN [Suspect]
     Dosage: UNK
  3. CAPTOPRIL [Suspect]
     Dosage: UNK
  4. ASA [Suspect]
     Dosage: UNK
  5. HUMULIN N [Suspect]
     Dosage: UNK

REACTIONS (1)
  - Drug hypersensitivity [Unknown]
